FAERS Safety Report 15357828 (Version 2)
Quarter: 2018Q3

REPORT INFORMATION
  Report Type: Spontaneous
  Country: US (occurrence: US)
  Receive Date: 20180906
  Receipt Date: 20180926
  Transmission Date: 20181010
  Serious: Yes (Hospitalization, Other)
  Sender: FDA-Public Use
  Company Number: US-PFIZER INC-2018357707

PATIENT
  Age: 10 Year
  Sex: Male

DRUGS (1)
  1. GENOTROPIN MQ [Suspect]
     Active Substance: SOMATROPIN
     Dosage: 1.0 MG, DAILY
     Dates: start: 200909

REACTIONS (7)
  - Blood chloride decreased [Unknown]
  - Carbon dioxide decreased [Unknown]
  - Blood sodium decreased [Unknown]
  - Bone density decreased [Unknown]
  - Blood potassium increased [Unknown]
  - Unresponsive to stimuli [Unknown]
  - Insulin-like growth factor decreased [Unknown]

NARRATIVE: CASE EVENT DATE: 20180713
